FAERS Safety Report 7790234-0 (Version None)
Quarter: 2011Q3

REPORT INFORMATION
  Report Type: 
  Country: None (occurrence: None)
  Receive Date: 20110930
  Receipt Date: 20110923
  Transmission Date: 20111222
  Serious: Yes (Life-Threatening)
  Sender: FDA-Public Use
  Company Number: CZ-TYCO HEALTHCARE/MALLINCKRODT-T201101852

PATIENT

DRUGS (5)
  1. ANOPYRIN [Concomitant]
     Dosage: UNK
  2. VASOCARDIN [Concomitant]
  3. OPTIRAY 160 [Suspect]
     Indication: COMPUTERISED TOMOGRAM HEAD
     Dosage: 50 ML, SINGLE
     Route: 042
     Dates: start: 20110919, end: 20110919
  4. ENAP-HL                            /01098101/ [Concomitant]
  5. PRESTARIUM                         /00790701/ [Concomitant]
     Dosage: UNK

REACTIONS (3)
  - LOSS OF CONSCIOUSNESS [None]
  - GRAND MAL CONVULSION [None]
  - HYPOTENSION [None]
